FAERS Safety Report 4471209-6 (Version None)
Quarter: 2004Q4

REPORT INFORMATION
  Report Type: 
  Country: None (occurrence: None)
  Receive Date: 20041006
  Receipt Date: 20040923
  Transmission Date: 20050328
  Serious: Yes (Other)
  Sender: FDA-Public Use
  Company Number: 2004061480

PATIENT
  Age: 85 Year
  Sex: Female
  Weight: 72 kg

DRUGS (5)
  1. NEURONTIN [Suspect]
     Indication: HERPES ZOSTER
     Dosage: 900 MG, ORAL
     Route: 048
     Dates: start: 20020101
  2. AMLODIPINE BESYLATE [Concomitant]
  3. PAROXETINE HCL [Concomitant]
  4. RILMENIDINE DIHYDROGEN PHOSPHATE         (RILMENIDINE DIHYDROGEN PHOSP [Concomitant]
  5. PROPOXYPHENE HCL [Concomitant]

REACTIONS (3)
  - FALL [None]
  - RIB FRACTURE [None]
  - VERTIGO [None]
